FAERS Safety Report 5856533-4 (Version None)
Quarter: 2008Q3

REPORT INFORMATION
  Report Type: 
  Country: None (occurrence: None)
  Receive Date: 20080825
  Receipt Date: 20080818
  Transmission Date: 20090109
  Serious: Yes (Other)
  Sender: FDA-Public Use
  Company Number: GB-ASTRAZENECA-2008GB01578

PATIENT
  Age: 58 Year
  Sex: Female

DRUGS (5)
  1. ARIMIDEX [Suspect]
     Dosage: 1MG
     Route: 048
     Dates: end: 20071001
  2. LANSOPRAZOLE [Concomitant]
     Dosage: 15MG
     Route: 048
     Dates: start: 20030801
  3. SERETIDE [Concomitant]
     Dosage: 2DF
     Route: 055
     Dates: start: 20030801
  4. TAMOXIFEN CITRATE [Concomitant]
     Dosage: 20MG
     Route: 048
     Dates: start: 20030801, end: 20040801
  5. THYROXINE [Concomitant]
     Dosage: 50UG
     Route: 048
     Dates: start: 20030801

REACTIONS (2)
  - ARTHRALGIA [None]
  - HAIR GROWTH ABNORMAL [None]
